FAERS Safety Report 6049736-X (Version None)
Quarter: 2009Q1

REPORT INFORMATION
  Report Type: 
  Country: None (occurrence: None)
  Receive Date: 20090121
  Receipt Date: 20080512
  Transmission Date: 20090719
  Serious: Yes (Hospitalization, Other)
  Sender: FDA-Public Use
  Company Number: US-WYE-H01216107

PATIENT
  Age: 76 Year
  Sex: Female

DRUGS (9)
  1. PREMPRO [Suspect]
  2. CYCRIN [Suspect]
  3. ESTRADIOL [Suspect]
  4. ESTROPIPATE [Suspect]
  5. FEMHRT [Suspect]
  6. NORETHINDRONE ACETATE [Suspect]
  7. PREMARIN [Suspect]
  8. PROMETRIUM [Suspect]
  9. PROVERA [Suspect]

REACTIONS (1)
  - OVARIAN CANCER [None]
